FAERS Safety Report 18778694 (Version 1)
Quarter: 2021Q1

REPORT INFORMATION
  Report Type: Spontaneous
  Country: US (occurrence: US)
  Receive Date: 20210124
  Receipt Date: 20210124
  Transmission Date: 20210419
  Serious: No
  Sender: FDA-Public Use
  Company Number: US-009507513-2101USA006213

PATIENT
  Age: 21 Year
  Sex: Female

DRUGS (3)
  1. DIGOXIN. [Suspect]
     Active Substance: DIGOXIN
     Dosage: 0.25 MILLIGRAM THREE TIMES PER DAY
     Route: 048
  2. CELESTONE SOLUSPAN [Suspect]
     Active Substance: BETAMETHASONE ACETATE\BETAMETHASONE SODIUM PHOSPHATE
     Indication: ABNORMAL ORGAN MATURATION
     Dosage: UNK
     Route: 030
  3. FLECAINIDE [Suspect]
     Active Substance: FLECAINIDE
     Dosage: 100 MILLIGRAM, BID

REACTIONS (1)
  - Maternal exposure during pregnancy [Recovered/Resolved]
